FAERS Safety Report 10813498 (Version 2)
Quarter: 2015Q2

REPORT INFORMATION
  Report Type: Spontaneous
  Country: US (occurrence: US)
  Receive Date: 20150218
  Receipt Date: 20150427
  Transmission Date: 20150821
  Serious: No
  Sender: FDA-Public Use
  Company Number: US-PFIZER INC-2015058296

PATIENT
  Age: 84 Year
  Sex: Female

DRUGS (2)
  1. XALATAN [Suspect]
     Active Substance: LATANOPROST
     Dosage: ONE DROP INTO EACH EYE AT BEDTIME, DAILY
     Route: 031
  2. XALATAN [Suspect]
     Active Substance: LATANOPROST
     Dosage: ONE DROP INTO EACH EYE, AT BEDTIME, DAILY
     Route: 047

REACTIONS (2)
  - Foreign body sensation in eyes [Not Recovered/Not Resolved]
  - Product quality issue [Unknown]

NARRATIVE: CASE EVENT DATE: 20150126
